FAERS Safety Report 11097175 (Version 2)
Quarter: 2015Q2

REPORT INFORMATION
  Report Type: Spontaneous
  Country: US (occurrence: US)
  Receive Date: 20150507
  Receipt Date: 20150508
  Transmission Date: 20150821
  Serious: No
  Sender: FDA-Public Use
  Company Number: US-ASTRAZENECA-2015SE39778

PATIENT
  Sex: Female
  Weight: 77.6 kg

DRUGS (4)
  1. CRESTOR [Suspect]
     Active Substance: ROSUVASTATIN CALCIUM
     Indication: BLOOD CHOLESTEROL ABNORMAL
     Route: 048
     Dates: start: 2014
  2. OMEPRAZOLE. [Suspect]
     Active Substance: OMEPRAZOLE
     Indication: GASTROOESOPHAGEAL REFLUX DISEASE
     Route: 048
  3. BABY ASPIRIN [Concomitant]
     Active Substance: ASPIRIN
     Dosage: DAILY
  4. ALFUZOSIN [Concomitant]
     Active Substance: ALFUZOSIN
     Indication: BLOOD PRESSURE INCREASED
     Dosage: DAILY

REACTIONS (3)
  - Intentional product use issue [Not Recovered/Not Resolved]
  - Feeling hot [Unknown]
  - Limb discomfort [Not Recovered/Not Resolved]
